FAERS Safety Report 6380409-X (Version None)
Quarter: 2009Q3

REPORT INFORMATION
  Report Type: 
  Country: None (occurrence: None)
  Receive Date: 20090929
  Receipt Date: 20090914
  Transmission Date: 20100115
  Serious: Yes (Hospitalization, Other)
  Sender: FDA-Public Use
  Company Number: US-BRISTOL-MYERS SQUIBB COMPANY-14795967

PATIENT
  Age: 68 Year
  Sex: Female
  Weight: 60 kg

DRUGS (6)
  1. CETUXIMAB [Suspect]
     Indication: NON-SMALL CELL LUNG CANCER METASTATIC
     Dosage: 3SEP09 RECEIVED 4TH INFUSION
     Route: 042
     Dates: start: 20090813, end: 20090910
  2. TAXOTERE [Suspect]
     Indication: NON-SMALL CELL LUNG CANCER METASTATIC
     Route: 042
     Dates: start: 20090813, end: 20090903
  3. NEUPOGEN [Concomitant]
  4. MULTI-VITAMINS [Concomitant]
  5. EXTRA STRENGTH TYLENOL [Concomitant]
     Indication: PAIN
     Dosage: Q4H
  6. EXTRA STRENGTH TYLENOL [Concomitant]
     Indication: PYREXIA
     Dosage: Q4H

REACTIONS (4)
  - COUGH [None]
  - LOBAR PNEUMONIA [None]
  - PLEURAL EFFUSION [None]
  - PYREXIA [None]
